FAERS Safety Report 5708896-8 (Version None)
Quarter: 2008Q2

REPORT INFORMATION
  Report Type: 
  Country: None (occurrence: None)
  Receive Date: 20080416
  Receipt Date: 20080407
  Transmission Date: 20081010
  Serious: Yes (Other)
  Sender: FDA-Public Use
  Company Number: 231184J07USA

PATIENT
  Age: 51 Year
  Sex: Female
  Weight: 77.1115 kg

DRUGS (5)
  1. REBIF [Suspect]
     Indication: MULTIPLE SCLEROSIS
     Dosage: 44 MCG, 3 IN 1 WEEKS, SUBCUTANEOUS
     Route: 057
     Dates: start: 20040818, end: 20071215
  2. BACLOFEN [Concomitant]
  3. LEXAPRO [Concomitant]
  4. CENTRUM MULTI VITAMIN (CENTRUM /00554501/) [Concomitant]
  5. ASPIRIN [Concomitant]

REACTIONS (8)
  - DRUG HYPERSENSITIVITY [None]
  - ERYTHEMA [None]
  - HYPERAESTHESIA [None]
  - HYPERKERATOSIS [None]
  - ONYCHOMADESIS [None]
  - RASH MACULO-PAPULAR [None]
  - RASH PUSTULAR [None]
  - SKIN EXFOLIATION [None]
